FAERS Safety Report 9719399 (Version 4)
Quarter: 2014Q2

REPORT INFORMATION
  Report Type: Spontaneous
  Country: CA (occurrence: CA)
  Receive Date: 20131128
  Receipt Date: 20140605
  Transmission Date: 20141212
  Serious: Yes (Hospitalization)
  Sender: FDA-Public Use
  Company Number: CA-ROCHE-1268849

PATIENT
  Age: 13 Year
  Sex: Male

DRUGS (7)
  1. XOLAIR [Suspect]
     Indication: ASTHMA
     Route: 058
     Dates: start: 20120725
  2. XOLAIR [Suspect]
     Route: 058
     Dates: start: 20130704
  3. XOLAIR [Suspect]
     Route: 058
     Dates: start: 20131119
  4. XOLAIR [Suspect]
     Route: 058
     Dates: start: 20140311
  5. ADVAIR [Concomitant]
  6. SINGULAIR [Concomitant]
  7. PREDNISONE [Concomitant]

REACTIONS (5)
  - Asthma [Recovered/Resolved]
  - Nasopharyngitis [Recovering/Resolving]
  - Injection site pain [Recovering/Resolving]
  - Heart rate increased [Not Recovered/Not Resolved]
  - Upper respiratory tract infection [Unknown]
